FAERS Safety Report 5696866-8 (Version None)
Quarter: 2008Q2

REPORT INFORMATION
  Report Type: 
  Country: None (occurrence: None)
  Receive Date: 20080408
  Receipt Date: 20061213
  Transmission Date: 20081010
  Serious: No
  Sender: FDA-Public Use
  Company Number: US-BAYER-US-2006-039892

PATIENT
  Age: 21 Year
  Sex: Female
  Weight: 56 kg

DRUGS (2)
  1. YASMIN [Suspect]
     Route: 048
     Dates: start: 20050601, end: 20051201
  2. YASMIN [Suspect]
     Route: 048
     Dates: start: 20060401, end: 20060501

REACTIONS (2)
  - BREAST PAIN [None]
  - MENSTRUATION IRREGULAR [None]
